FAERS Safety Report 18759707 (Version 2)
Quarter: 2021Q1

REPORT INFORMATION
  Report Type: Spontaneous
  Country: GB (occurrence: GB)
  Receive Date: 20210120
  Receipt Date: 20210122
  Transmission Date: 20210419
  Serious: Yes (Other)
  Sender: FDA-Public Use
  Company Number: GB-SUN PHARMACEUTICAL INDUSTRIES LTD-2021RR-276454

PATIENT
  Age: 86 Year

DRUGS (1)
  1. CLARITHROMYCIN. [Suspect]
     Active Substance: CLARITHROMYCIN
     Indication: PRODUCT USED FOR UNKNOWN INDICATION
     Dosage: 500 MG
     Route: 065

REACTIONS (6)
  - Hyperacusis [Unknown]
  - Wrong technique in product usage process [Unknown]
  - Deafness [Unknown]
  - Sleep disorder [Unknown]
  - Tinnitus [Unknown]
  - Dizziness [Unknown]
